FAERS Safety Report 9121240 (Version 4)
Quarter: 2013Q2

REPORT INFORMATION
  Report Type: Report from Study
  Country: DE (occurrence: DE)
  Receive Date: 20130225
  Receipt Date: 20130507
  Transmission Date: 20140414
  Serious: Yes (Hospitalization)
  Sender: FDA-Public Use
  Company Number: DE-EISAI INC-E2007-00771-CLI-DE

PATIENT
  Age: 26 Year
  Sex: Male
  Weight: 69.3 kg

DRUGS (8)
  1. E2007 (PERAMPANEL) [Suspect]
     Indication: EPILEPSY
     Dosage: DOUBLE BLIND COVERSION PERIOD
     Route: 048
     Dates: start: 20100414, end: 20100812
  2. E2007 (PERAMPANEL) [Suspect]
     Route: 048
     Dates: start: 20100813, end: 20101216
  3. E2007 (PERAMPANEL) [Suspect]
     Route: 048
     Dates: start: 20101217, end: 20120813
  4. LUMINAL [Concomitant]
     Indication: EPILEPSY
     Route: 048
     Dates: start: 20090811, end: 20111101
  5. LUMINAL [Concomitant]
     Route: 048
     Dates: start: 20111102
  6. ORFIRIL LONG [Concomitant]
     Indication: EPILEPSY
     Route: 048
     Dates: start: 20090320
  7. LAMICTAL [Concomitant]
     Indication: EPILEPSY
     Route: 048
     Dates: start: 20101209
  8. LAMICTAL [Concomitant]
     Route: 048
     Dates: start: 20110430

REACTIONS (3)
  - Weight decreased [Recovered/Resolved]
  - Convulsion [Recovering/Resolving]
  - Grand mal convulsion [Recovered/Resolved]
